FAERS Safety Report 7647990-1 (Version None)
Quarter: 2011Q3

REPORT INFORMATION
  Report Type: 
  Country: None (occurrence: None)
  Receive Date: 20110801
  Receipt Date: 20110614
  Transmission Date: 20111222
  Serious: No
  Sender: FDA-Public Use
  Company Number: US-ABBOTT-11P-163-0732317-00

PATIENT
  Sex: Female

DRUGS (4)
  1. CREON [Suspect]
     Indication: CYSTIC FIBROSIS
     Dosage: 4 CAPSULES WITH EVERY MEAL
     Dates: start: 20100701
  2. ALBUTEROL SULFATE AUTOHALER [Concomitant]
     Indication: OBSTRUCTIVE AIRWAYS DISORDER
     Dosage: NEBULIZER
  3. VITAMIN ADEK SUPPLEMENT [Concomitant]
     Indication: PRODUCT USED FOR UNKNOWN INDICATION
  4. PREVACID [Concomitant]
     Indication: PRODUCT USED FOR UNKNOWN INDICATION

REACTIONS (2)
  - ABNORMAL FAECES [None]
  - PRODUCT QUALITY ISSUE [None]
